FAERS Safety Report 9714081 (Version 2)
Quarter: 2014Q1

REPORT INFORMATION
  Report Type: Spontaneous
  Country: US (occurrence: US)
  Receive Date: 20131126
  Receipt Date: 20140108
  Transmission Date: 20141002
  Serious: Yes (Death, Other)
  Sender: FDA-Public Use
  Company Number: US-PFIZER INC-2013335375

PATIENT
  Age: 76 Year
  Sex: Male

DRUGS (6)
  1. REVATIO [Suspect]
     Indication: PULMONARY HYPERTENSION
     Dosage: 20 MG, 3X/DAY
     Route: 048
     Dates: start: 200806, end: 20131107
  2. PREDNISONE [Concomitant]
     Indication: PULMONARY FIBROSIS
     Dosage: 10 MG, DAILY
     Route: 048
     Dates: end: 20131107
  3. MYCOPHENOLATE MOFETIL [Concomitant]
     Dosage: 1 G, 2X/DAY
     Route: 048
     Dates: end: 20131107
  4. N-ACETYLCYSTEINE [Concomitant]
     Dosage: 600 MG, 3X/DAY
     Route: 048
     Dates: end: 20131107
  5. OMEPRAZOLE [Concomitant]
     Dosage: 40 MG, 2X/DAY
     Route: 048
  6. RANITIDINE [Concomitant]
     Dosage: 300 MG, DAILY
     Route: 048

REACTIONS (3)
  - Respiratory failure [Fatal]
  - Pulmonary fibrosis [Fatal]
  - Pulmonary hypertension [Unknown]
